FAERS Safety Report 6041328-1 (Version None)
Quarter: 2009Q1

REPORT INFORMATION
  Report Type: 
  Country: None (occurrence: None)
  Receive Date: 20090116
  Receipt Date: 20081001
  Transmission Date: 20090719
  Serious: No
  Sender: FDA-Public Use
  Company Number: US-BRISTOL-MYERS SQUIBB COMPANY-14356166

PATIENT
  Age: 36 Year
  Sex: Male

DRUGS (1)
  1. ABILIFY [Suspect]
     Dosage: STARTED AT 10MG QD, INCREASED TO 15MG QD.
     Dates: start: 20080318, end: 20080611

REACTIONS (5)
  - IRRITABILITY [None]
  - MOOD SWINGS [None]
  - NERVOUSNESS [None]
  - SLEEP DISORDER [None]
  - SUICIDAL IDEATION [None]
